FAERS Safety Report 12599067 (Version 1)
Quarter: 2016Q3

REPORT INFORMATION
  Report Type: Spontaneous
  Country: JP (occurrence: JP)
  Receive Date: 20160727
  Receipt Date: 20160727
  Transmission Date: 20161109
  Serious: Yes (Other)
  Sender: FDA-Public Use
  Company Number: JP-GILEAD-2016-0224437

PATIENT
  Age: 85 Year
  Sex: Female

DRUGS (1)
  1. HARVONI [Suspect]
     Active Substance: LEDIPASVIR\SOFOSBUVIR
     Indication: CHRONIC HEPATITIS
     Dosage: UNK
     Route: 065
     Dates: start: 20160109, end: 20160324

REACTIONS (4)
  - Hepatitis C [Not Recovered/Not Resolved]
  - Incorrect drug administration duration [Unknown]
  - Lacunar infarction [Unknown]
  - Drug ineffective [Not Recovered/Not Resolved]

NARRATIVE: CASE EVENT DATE: 20160324
